FAERS Safety Report 4459049-5 (Version None)
Quarter: 2004Q3

REPORT INFORMATION
  Report Type: 
  Country: None (occurrence: None)
  Receive Date: 20040927
  Receipt Date: 20040916
  Transmission Date: 20050211
  Serious: Yes (Hospitalization)
  Sender: FDA-Public Use
  Company Number: US-JNJFOC-20040608538

PATIENT
  Sex: Female
  Weight: 48.99 kg

DRUGS (21)
  1. REMICADE [Suspect]
     Route: 042
  2. REMICADE [Suspect]
     Route: 042
  3. REMICADE [Suspect]
     Route: 042
  4. REMICADE [Suspect]
     Indication: RHEUMATOID ARTHRITIS
     Route: 042
  5. PREDNISONE [Concomitant]
  6. FOLIC ACID [Concomitant]
  7. NORVASC [Concomitant]
  8. NEXIUM [Concomitant]
  9. TYLENOL [Concomitant]
  10. ADVAIR DISKUS 100/50 [Concomitant]
  11. ADVAIR DISKUS 100/50 [Concomitant]
  12. MESALAMINE [Concomitant]
  13. VITAMIN C [Concomitant]
  14. DISALCID [Concomitant]
  15. PREVACID [Concomitant]
  16. CLARITIN [Concomitant]
  17. ALBUTEROL [Concomitant]
  18. SPIRIVA [Concomitant]
  19. COMBIVENT [Concomitant]
  20. COMBIVENT [Concomitant]
  21. CALCIUM [Concomitant]

REACTIONS (18)
  - ABDOMINAL DISTENSION [None]
  - ABDOMINAL PAIN [None]
  - ARTHRALGIA [None]
  - BILIARY DILATATION [None]
  - BLOOD BILIRUBIN DECREASED [None]
  - CHOLELITHIASIS [None]
  - DEAFNESS [None]
  - HEADACHE [None]
  - HOARSENESS [None]
  - ILEUS [None]
  - IMMOBILE [None]
  - INFUSION RELATED REACTION [None]
  - OROPHARYNGEAL SWELLING [None]
  - PANCREATITIS [None]
  - PYREXIA [None]
  - URINARY TRACT INFECTION [None]
  - UROSEPSIS [None]
  - WEIGHT INCREASED [None]
